FAERS Safety Report 20099171 (Version 1)
Quarter: 2021Q4

REPORT INFORMATION
  Report Type: Spontaneous
  Country: US (occurrence: US)
  Receive Date: 20211122
  Receipt Date: 20211122
  Transmission Date: 20220304
  Serious: No
  Sender: FDA-Public Use
  Company Number: US-FRESENIUS KABI-FK202112886

PATIENT
  Sex: Male

DRUGS (2)
  1. XYLOCAINE-MPF [Suspect]
     Active Substance: LIDOCAINE HYDROCHLORIDE
     Indication: Surgery
     Dosage: UNKNOWN
     Route: 065
  2. OMIDRIA [Suspect]
     Active Substance: KETOROLAC\PHENYLEPHRINE
     Indication: Surgery
     Dosage: INTRAOCULAR IRRIGATION SOLUTION, 1 PERCENT/0.3 PERCENT
     Route: 065

REACTIONS (2)
  - Corneal oedema [Unknown]
  - Intentional product use issue [Unknown]
